FAERS Safety Report 23277772 (Version 1)
Quarter: 2023Q4

REPORT INFORMATION
  Report Type: Spontaneous
  Country: US (occurrence: None)
  Receive Date: 20231207
  Receipt Date: 20231207
  Transmission Date: 20240110
  Serious: Yes (Other)
  Sender: FDA-Public Use
  Company Number: None

PATIENT
  Age: 72 Year
  Sex: Male
  Weight: 69.75 kg

DRUGS (4)
  1. MULTIHANCE [Suspect]
     Active Substance: GADOBENATE DIMEGLUMINE
     Dates: start: 20231025, end: 20231025
  2. REMERON [Concomitant]
     Active Substance: MIRTAZAPINE
  3. VALIUM [Concomitant]
     Active Substance: DIAZEPAM
  4. VITAMINS [Concomitant]
     Active Substance: VITAMINS

REACTIONS (8)
  - Vibratory sense increased [None]
  - Tinnitus [None]
  - Headache [None]
  - Brain fog [None]
  - Feeling cold [None]
  - Vision blurred [None]
  - Somnolence [None]
  - Fatigue [None]

NARRATIVE: CASE EVENT DATE: 20231025
